FAERS Safety Report 21801422 (Version 2)
Quarter: 2023Q1

REPORT INFORMATION
  Report Type: Spontaneous
  Country: FR (occurrence: FR)
  Receive Date: 20221230
  Receipt Date: 20230203
  Transmission Date: 20230418
  Serious: Yes (Hospitalization)
  Sender: FDA-Public Use
  Company Number: None

PATIENT
  Age: 79 Year
  Sex: Female
  Weight: 78 kg

DRUGS (2)
  1. NEORAL [Suspect]
     Active Substance: CYCLOSPORINE
     Indication: Thrombocytopenia
     Dosage: 150 MG (100 MG/MATIN ET 50 MG/SOIR1-0-1)
     Route: 048
  2. NEORAL [Suspect]
     Active Substance: CYCLOSPORINE
     Indication: Immune thrombocytopenia

REACTIONS (2)
  - Nasal mucosal blistering [Recovering/Resolving]
  - Herpes simplex [Recovering/Resolving]

NARRATIVE: CASE EVENT DATE: 20221216
